APPROVED DRUG PRODUCT: HYDROXYZINE HYDROCHLORIDE
Active Ingredient: HYDROXYZINE HYDROCHLORIDE
Strength: 10MG/5ML
Dosage Form/Route: SYRUP;ORAL
Application: A210634 | Product #001 | TE Code: AA
Applicant: APOZEAL PHARMACEUTICALS INC
Approved: Feb 26, 2019 | RLD: No | RS: No | Type: RX